FAERS Safety Report 21438821 (Version 5)
Quarter: 2023Q1

REPORT INFORMATION
  Report Type: Spontaneous
  Country: US (occurrence: US)
  Receive Date: 20221011
  Receipt Date: 20230111
  Transmission Date: 20230418
  Serious: No
  Sender: FDA-Public Use
  Company Number: US-BIOGEN-2022BI01154905

PATIENT
  Age: 69 Year
  Sex: Male

DRUGS (3)
  1. TYSABRI [Suspect]
     Active Substance: NATALIZUMAB
     Indication: Multiple sclerosis
     Dosage: INFUSED OVER 1 HOUR
     Route: 050
     Dates: start: 20180117
  2. TYSABRI [Suspect]
     Active Substance: NATALIZUMAB
     Route: 050
  3. TYSABRI [Suspect]
     Active Substance: NATALIZUMAB
     Route: 050

REACTIONS (5)
  - Product dose omission issue [Not Recovered/Not Resolved]
  - Prescribed underdose [Unknown]
  - Amnesia [Unknown]
  - Mental impairment [Unknown]
  - Blood glucose increased [Unknown]

NARRATIVE: CASE EVENT DATE: 20220927
